FAERS Safety Report 6168635-6 (Version None)
Quarter: 2009Q2

REPORT INFORMATION
  Report Type: 
  Country: None (occurrence: None)
  Receive Date: 20090427
  Receipt Date: 20090420
  Transmission Date: 20091009
  Serious: Yes (Hospitalization, Other)
  Sender: FDA-Public Use
  Company Number: US-ABBOTT-09P-163-0569334-00

PATIENT
  Sex: Female
  Weight: 76.272 kg

DRUGS (5)
  1. TRICOR [Suspect]
     Indication: BLOOD CHOLESTEROL INCREASED
     Dates: start: 20040101, end: 20050101
  2. INSULIN [Concomitant]
     Indication: DIABETES MELLITUS
  3. ZETIA [Concomitant]
     Indication: BLOOD CHOLESTEROL INCREASED
  4. ALLOPURINOL [Concomitant]
     Indication: GOUT
  5. DIOVAN [Concomitant]
     Indication: HYPERTENSION

REACTIONS (3)
  - MUSCLE SPASMS [None]
  - MYALGIA [None]
  - PYREXIA [None]
